FAERS Safety Report 8631813 (Version 5)
Quarter: 2012Q4

REPORT INFORMATION
  Report Type: 
  Country: US (occurrence: US)
  Receive Date: 20120625
  Receipt Date: 20120828
  Transmission Date: 20130627
  Serious: No
  Sender: FDA-Public Use
  Company Number: US-JNJFOC-20120605480

PATIENT
  Age: 41 None
  Sex: Male
  Weight: 61.24 kg

DRUGS (2)
  1. DURAGESIC [Suspect]
     Indication: PAIN
     Route: 062
     Dates: start: 2002
  2. UNKNOWN MEDICATION [Concomitant]
     Indication: BREAKTHROUGH PAIN
     Route: 065

REACTIONS (6)
  - Wrong technique in drug usage process [Not Recovered/Not Resolved]
  - Drug ineffective [Unknown]
  - Poor quality drug administered [Not Recovered/Not Resolved]
  - Product quality issue [Unknown]
  - Product quality issue [Not Recovered/Not Resolved]
  - Product quality issue [Not Recovered/Not Resolved]
